FAERS Safety Report 7682360-1 (Version None)
Quarter: 2011Q3

REPORT INFORMATION
  Report Type: 
  Country: None (occurrence: None)
  Receive Date: 20110815
  Receipt Date: 20110810
  Transmission Date: 20111222
  Serious: Yes (Other)
  Sender: FDA-Public Use
  Company Number: US-BRISTOL-MYERS SQUIBB COMPANY-15962640

PATIENT

DRUGS (1)
  1. ABILIFY [Suspect]
     Indication: SCHIZOPHRENIA
     Dosage: STARTED AS 20MG THEN DOSE REDUCED AS 15MG THEN TO 10MG

REACTIONS (2)
  - BLOOD GLUCOSE FLUCTUATION [None]
  - PSYCHOTIC DISORDER [None]
